FAERS Safety Report 14601066 (Version 8)
Quarter: 2019Q4

REPORT INFORMATION
  Report Type: Report from Study
  Country: US (occurrence: US)
  Receive Date: 20180305
  Receipt Date: 20191203
  Transmission Date: 20200122
  Serious: Yes (Hospitalization)
  Sender: FDA-Public Use
  Company Number: US-ACTELION-A-US2017-160058

PATIENT
  Age: 3 Year
  Sex: Female
  Weight: 11.34 kg

DRUGS (12)
  1. SOLU-CORTEF [Concomitant]
     Active Substance: HYDROCORTISONE SODIUM SUCCINATE
     Dosage: 50 MG, PRN
  2. TRACLEER [Suspect]
     Active Substance: BOSENTAN
     Dosage: 62.5 MG, BID
     Route: 048
     Dates: start: 20170101
  3. TRACLEER [Suspect]
     Active Substance: BOSENTAN
     Dosage: 31.25 MG, BID
     Route: 048
     Dates: start: 2016
  4. REVATIO [Concomitant]
     Active Substance: SILDENAFIL CITRATE
     Dosage: 10 MG, TID
     Dates: start: 2016
  5. TOBRAMYCIN. [Concomitant]
     Active Substance: TOBRAMYCIN
  6. TRACLEER [Suspect]
     Active Substance: BOSENTAN
     Indication: PULMONARY ARTERIAL HYPERTENSION
     Dosage: 125 MG
     Route: 048
  7. REVATIO [Concomitant]
     Active Substance: SILDENAFIL CITRATE
     Dosage: 16 UNK, UNK
     Route: 048
  8. TRACLEER [Suspect]
     Active Substance: BOSENTAN
     Dosage: 22.5 MG, BID
     Route: 048
  9. REMODULIN [Concomitant]
     Active Substance: TREPROSTINIL
     Dosage: 30 NG/KG, UNK
     Dates: end: 2018
  10. REMODULIN [Concomitant]
     Active Substance: TREPROSTINIL
     Dosage: 40 NG/KG, PER MIN
  11. TRACLEER [Suspect]
     Active Substance: BOSENTAN
     Dosage: 18.75 MG, BID
     Route: 048
  12. TRACLEER [Suspect]
     Active Substance: BOSENTAN
     Dosage: 37.5 UNK
     Route: 048
     Dates: start: 20160217

REACTIONS (11)
  - Rhinovirus infection [Unknown]
  - Enterovirus infection [Unknown]
  - Rotavirus infection [Recovered/Resolved]
  - Oxygen saturation decreased [Unknown]
  - Oxygen consumption increased [Unknown]
  - Nasopharyngitis [Unknown]
  - Respiratory distress [Unknown]
  - Parainfluenzae virus infection [Unknown]
  - Hospitalisation [Unknown]
  - Febrile infection [Recovered/Resolved]
  - Condition aggravated [Unknown]

NARRATIVE: CASE EVENT DATE: 20190402
